FAERS Safety Report 14565905 (Version 2)
Quarter: 2018Q2

REPORT INFORMATION
  Report Type: Spontaneous
  Country: US (occurrence: US)
  Receive Date: 20180223
  Receipt Date: 20180420
  Transmission Date: 20180711
  Serious: Yes (Other)
  Sender: FDA-Public Use
  Company Number: US-ASTRAZENECA-2018SE23173

PATIENT
  Age: 37 Year
  Sex: Male
  Weight: 99.8 kg

DRUGS (23)
  1. INSULIN [Concomitant]
     Active Substance: INSULIN NOS
     Indication: TYPE 1 DIABETES MELLITUS
     Dates: start: 1990
  2. LEVEMIR [Concomitant]
     Active Substance: INSULIN DETEMIR
     Dosage: 12 UNITS DAILY
  3. RAMIPRIL. [Concomitant]
     Active Substance: RAMIPRIL
  4. MULTI-VITAMIN [Concomitant]
     Active Substance: .ALPHA.-TOCOPHEROL ACETATE, DL-\ASCORBIC ACID\CYANOCOBALAMIN\FLUORIDE ION\FOLIC ACID\NIACIN\PYRIDOXINE\RIBOFLAVIN\THIAMINE\VITAMIN A\VITAMIN D
     Route: 048
  5. NEXIUM [Suspect]
     Active Substance: ESOMEPRAZOLE MAGNESIUM
     Indication: GASTROOESOPHAGEAL REFLUX DISEASE
     Route: 048
     Dates: start: 2004, end: 2006
  6. PRILOSEC [Suspect]
     Active Substance: OMEPRAZOLE MAGNESIUM
     Indication: GASTROOESOPHAGEAL REFLUX DISEASE
     Route: 048
     Dates: start: 2006, end: 2008
  7. LEXAPRO [Concomitant]
     Active Substance: ESCITALOPRAM OXALATE
     Indication: TYPE 1 DIABETES MELLITUS
     Dates: start: 2012, end: 2017
  8. ZANTAC [Concomitant]
     Active Substance: RANITIDINE HYDROCHLORIDE
     Dosage: 150
     Dates: start: 2013, end: 2014
  9. PRILOSEC [Suspect]
     Active Substance: OMEPRAZOLE MAGNESIUM
     Indication: GASTROOESOPHAGEAL REFLUX DISEASE
     Dates: start: 2004
  10. XARELTO [Concomitant]
     Active Substance: RIVAROXABAN
     Indication: COAGULOPATHY
     Dates: start: 2013, end: 2015
  11. NEXIUM [Suspect]
     Active Substance: ESOMEPRAZOLE MAGNESIUM
     Indication: GASTROOESOPHAGEAL REFLUX DISEASE
     Route: 048
     Dates: start: 2013, end: 2014
  12. WARFARIN [Concomitant]
     Active Substance: WARFARIN
     Indication: COAGULOPATHY
     Dates: start: 2011, end: 2013
  13. WARFARIN [Concomitant]
     Active Substance: WARFARIN
     Indication: COAGULOPATHY
     Dates: start: 2015
  14. NEXIUM [Suspect]
     Active Substance: ESOMEPRAZOLE MAGNESIUM
     Indication: GASTROOESOPHAGEAL REFLUX DISEASE
     Route: 048
     Dates: start: 2004
  15. PRILOSEC [Suspect]
     Active Substance: OMEPRAZOLE MAGNESIUM
     Indication: GASTROOESOPHAGEAL REFLUX DISEASE
     Route: 048
     Dates: start: 2008, end: 2018
  16. LYRICA [Concomitant]
     Active Substance: PREGABALIN
     Indication: NEUROPATHY PERIPHERAL
     Dates: start: 2015, end: 2017
  17. CRESTOR [Concomitant]
     Active Substance: ROSUVASTATIN CALCIUM
     Dates: start: 2013, end: 2014
  18. LASIX [Concomitant]
     Active Substance: FUROSEMIDE
     Route: 048
     Dates: start: 20150620
  19. HUMALOG [Concomitant]
     Active Substance: INSULIN LISPRO
     Dosage: DAILY MAXIMUM IS 100 UNITS
     Dates: start: 20150520
  20. BYETTA [Concomitant]
     Active Substance: EXENATIDE
     Dates: start: 20151006
  21. PRILOSEC OTC [Suspect]
     Active Substance: OMEPRAZOLE MAGNESIUM
     Indication: GASTROOESOPHAGEAL REFLUX DISEASE
     Route: 048
     Dates: start: 2006, end: 2008
  22. ALBUTEROL. [Concomitant]
     Active Substance: ALBUTEROL
     Dosage: 2 PUFFS Q.4 PRN
  23. LOSARTAN POTASSIUM. [Concomitant]
     Active Substance: LOSARTAN POTASSIUM

REACTIONS (12)
  - Urinary tract infection [Unknown]
  - Hypomagnesaemia [Unknown]
  - Renal disorder [Unknown]
  - Acute kidney injury [Unknown]
  - Kidney infection [Unknown]
  - Pharyngitis [Unknown]
  - Hypertension [Unknown]
  - End stage renal disease [Unknown]
  - Chronic kidney disease [Unknown]
  - Cardiovascular disorder [Unknown]
  - Bacteraemia [Unknown]
  - Obesity [Unknown]

NARRATIVE: CASE EVENT DATE: 2011
